FAERS Safety Report 15532647 (Version 1)
Quarter: 2018Q4

REPORT INFORMATION
  Report Type: Spontaneous
  Country: US (occurrence: US)
  Receive Date: 20181019
  Receipt Date: 20181019
  Transmission Date: 20190205
  Serious: Yes (Other)
  Sender: FDA-Public Use
  Company Number: US-MACLEODS PHARMACEUTICALS US LTD-MAC2017004355

PATIENT

DRUGS (30)
  1. METFORMIN HYDROCHLORIDE. [Suspect]
     Active Substance: METFORMIN HYDROCHLORIDE
     Indication: PRODUCT USED FOR UNKNOWN INDICATION
     Dosage: UNK
     Route: 065
  2. FLUOROURACIL. [Suspect]
     Active Substance: FLUOROURACIL
     Indication: RETROPERITONEAL CANCER
     Dosage: UNK, (CHEMOTHERAPY REGIME FOLFIRI)
     Route: 065
     Dates: end: 201005
  3. AVASTIN [Suspect]
     Active Substance: BEVACIZUMAB
     Indication: RETROPERITONEAL CANCER
     Dosage: UNK, (FOR RETROPERITONEAL CANCER)
     Route: 065
     Dates: end: 201005
  4. IRINOTECAN [Suspect]
     Active Substance: IRINOTECAN
     Indication: METASTASES TO PERITONEUM
     Dosage: UNK, ONCE IN EVERY 2 WEEKS(PERITONEAL CARCINOMATOSIS)
     Route: 065
  5. CITALOPRAM [Concomitant]
     Active Substance: CITALOPRAM HYDROBROMIDE
     Indication: PRODUCT USED FOR UNKNOWN INDICATION
     Dosage: UNK
     Route: 065
  6. LORAZEPAM. [Concomitant]
     Active Substance: LORAZEPAM
     Indication: PRODUCT USED FOR UNKNOWN INDICATION
     Dosage: UNK
     Route: 065
  7. ZOLPIDEM [Concomitant]
     Active Substance: ZOLPIDEM\ZOLPIDEM TARTRATE
     Indication: PRODUCT USED FOR UNKNOWN INDICATION
     Dosage: UNK
     Route: 065
  8. FOLINIC ACID [Suspect]
     Active Substance: LEUCOVORIN
     Indication: RETROPERITONEAL CANCER
     Dosage: 6 CYCLICAL (PERITONEAL CARCINOMATOSIS) (CHEMOTHERAPEUTIC REGIME FOLFIRI)
     Route: 065
     Dates: end: 201105
  9. AVASTIN [Suspect]
     Active Substance: BEVACIZUMAB
     Indication: METASTASES TO PERITONEUM
     Dosage: UNK, (FOR PERITONEAL CARCINOMATOSIS)
     Route: 065
     Dates: start: 201210
  10. IRINOTECAN [Suspect]
     Active Substance: IRINOTECAN
     Indication: ADENOCARCINOMA OF APPENDIX
     Dosage: 6 CYCLICAL (FOR RETROPERITONEAL CANCER) (CHEMOTHERAPEUTIC REGIME FOLFIRI)
     Route: 065
     Dates: end: 201005
  11. METOPROLOL. [Concomitant]
     Active Substance: METOPROLOL
     Indication: PRODUCT USED FOR UNKNOWN INDICATION
     Dosage: UNK
     Route: 065
  12. HYDROCODONE [Concomitant]
     Active Substance: HYDROCODONE
     Indication: PRODUCT USED FOR UNKNOWN INDICATION
     Dosage: UNK
     Route: 065
  13. VITAMIN D [Concomitant]
     Active Substance: CHOLECALCIFEROL
     Indication: PRODUCT USED FOR UNKNOWN INDICATION
     Dosage: UNK
     Route: 065
  14. XELODA [Suspect]
     Active Substance: CAPECITABINE
     Indication: RETROPERITONEAL CANCER
     Dosage: UNK
     Route: 065
  15. CELECOXIB. [Concomitant]
     Active Substance: CELECOXIB
     Indication: PRODUCT USED FOR UNKNOWN INDICATION
     Dosage: UNK
     Route: 065
  16. MECLIZINE [Concomitant]
     Active Substance: MECLIZINE HYDROCHLORIDE
     Indication: PRODUCT USED FOR UNKNOWN INDICATION
     Dosage: UNK
     Route: 065
  17. FOLINIC ACID [Suspect]
     Active Substance: LEUCOVORIN
     Indication: METASTASES TO PERITONEUM
     Dosage: UNK, (FOR RETROPERITONEAL CANCER)(CHEMOTHERAPEUTIC REGIME FOLFIRI)
     Route: 065
     Dates: end: 201005
  18. FLUOROURACIL. [Suspect]
     Active Substance: FLUOROURACIL
     Indication: METASTASES TO PERITONEUM
     Dosage: 6 CYCLICAL,(PERITONEAL CARCINOMATOSIS) (CHEMOTHERAPY REGIME FOLFIRI)
     Route: 065
     Dates: end: 201105
  19. IRINOTECAN [Suspect]
     Active Substance: IRINOTECAN
     Indication: RETROPERITONEAL CANCER
     Dosage: 6 CYCLICAL (PERITONEAL CARCINOMATOSIS) (CHEMOTHERAPEUTIC REGIME FOLFIRI)
     Route: 065
     Dates: end: 201105
  20. LANSOPRAZOLE. [Suspect]
     Active Substance: LANSOPRAZOLE
     Indication: PRODUCT USED FOR UNKNOWN INDICATION
     Dosage: UNK
     Route: 065
  21. ZOFRAN [Concomitant]
     Active Substance: ONDANSETRON HYDROCHLORIDE
     Indication: PRODUCT USED FOR UNKNOWN INDICATION
     Dosage: UNK
     Route: 065
  22. FOLINIC ACID [Suspect]
     Active Substance: LEUCOVORIN
     Indication: ADENOCARCINOMA OF APPENDIX
     Dosage: UNK, (FOR ADENOCARCINOMA OF APPENDIX) (CHEMOTHERAPEUTIC REGIME FOLFIRI)UNK
     Route: 065
     Dates: start: 2007
  23. IRINOTECAN [Suspect]
     Active Substance: IRINOTECAN
     Indication: CHEMOTHERAPY
     Dosage: UNK (ADENOCARCINOMA OF APPENDIX) (CHEMOTHERAPEUTIC REGIME FOLFIRI)
     Route: 065
     Dates: start: 2007
  24. IRINOTECAN [Suspect]
     Active Substance: IRINOTECAN
     Dosage: UNK, ONCE IN EVERY 3 WEEKS (PERITONEAL CARCINOMATOSIS)
     Route: 065
  25. ZANTAC [Concomitant]
     Active Substance: RANITIDINE HYDROCHLORIDE
     Indication: PRODUCT USED FOR UNKNOWN INDICATION
     Dosage: UNK
     Route: 065
  26. AVASTIN [Suspect]
     Active Substance: BEVACIZUMAB
     Indication: ADENOCARCINOMA OF APPENDIX
     Dosage: UNK, (ADENOCARCINOMA OF APPENDIX)
     Route: 065
     Dates: start: 2007
  27. AMITRIPTYLINE [Concomitant]
     Active Substance: AMITRIPTYLINE
     Indication: PRODUCT USED FOR UNKNOWN INDICATION
     Dosage: UNK
     Route: 065
  28. BENADRYL [Concomitant]
     Active Substance: DIPHENHYDRAMINE HYDROCHLORIDE
     Indication: PRODUCT USED FOR UNKNOWN INDICATION
     Dosage: UNK
     Route: 065
  29. LIPITOR [Concomitant]
     Active Substance: ATORVASTATIN CALCIUM
     Indication: PRODUCT USED FOR UNKNOWN INDICATION
     Dosage: UNK
     Route: 065
  30. LOPERAMIDE [Concomitant]
     Active Substance: LOPERAMIDE
     Indication: PRODUCT USED FOR UNKNOWN INDICATION
     Dosage: UNK
     Route: 065

REACTIONS (7)
  - Vomiting [Not Recovered/Not Resolved]
  - Nausea [Not Recovered/Not Resolved]
  - Gastrointestinal disorder [Not Recovered/Not Resolved]
  - Hypomagnesaemia [Not Recovered/Not Resolved]
  - Diarrhoea [Not Recovered/Not Resolved]
  - Fatigue [Not Recovered/Not Resolved]
  - Hypophagia [Not Recovered/Not Resolved]
